FAERS Safety Report 4550910-X (Version None)
Quarter: 2004Q4

REPORT INFORMATION
  Report Type: 
  Country: None (occurrence: None)
  Receive Date: 20041217
  Receipt Date: 20040908
  Transmission Date: 20050328
  Serious: No
  Sender: FDA-Public Use
  Company Number: 2004-BP-07961BP

PATIENT
  Sex: Male

DRUGS (5)
  1. SPIRIVA [Suspect]
     Indication: CHRONIC OBSTRUCTIVE AIRWAYS DISEASE
     Dosage: 18 MCG (18 MCG), IH
     Route: 055
     Dates: start: 20040801
  2. ATROVENT [Suspect]
     Indication: CHRONIC OBSTRUCTIVE AIRWAYS DISEASE
     Dosage: (18 MCG), IH
     Route: 055
     Dates: start: 20020101, end: 20040101
  3. QVAR (BECLOMETASONE DIPROPIONATE) [Concomitant]
  4. HYZAAR [Concomitant]
  5. HYTRIN [Concomitant]

REACTIONS (2)
  - HOARSENESS [None]
  - PHARYNGOLARYNGEAL PAIN [None]
